FAERS Safety Report 4602484-2 (Version None)
Quarter: 2005Q1

REPORT INFORMATION
  Report Type: 
  Country: None (occurrence: None)
  Receive Date: 20050309
  Receipt Date: 20050225
  Transmission Date: 20050727
  Serious: Yes (Hospitalization)
  Sender: FDA-Public Use
  Company Number: GB-BRISTOL-MYERS SQUIBB COMPANY-12878955

PATIENT
  Age: 17 Year
  Sex: Male

DRUGS (1)
  1. REYATAZ [Suspect]
     Route: 048
     Dates: start: 20050223, end: 20050224

REACTIONS (3)
  - AGITATION [None]
  - PRURITUS [None]
  - SUICIDAL IDEATION [None]
